FAERS Safety Report 4439707-9 (Version None)
Quarter: 2004Q3

REPORT INFORMATION
  Report Type: 
  Country: None (occurrence: None)
  Receive Date: 20040831
  Receipt Date: 20040824
  Transmission Date: 20050211
  Serious: Yes (Other)
  Sender: FDA-Public Use
  Company Number: 2004PK01416

PATIENT
  Age: 31 Year
  Sex: Male

DRUGS (6)
  1. SEROQUEL [Suspect]
     Dosage: 1200 MG DAILY PO
     Route: 048
     Dates: start: 20040507, end: 20040509
  2. SEROQUEL [Suspect]
     Dosage: 800 MG DAILY PO
     Route: 048
     Dates: start: 20040510, end: 20040511
  3. SEROQUEL [Suspect]
     Dosage: 1200 MG DAILY PO
     Route: 048
     Dates: start: 20040512, end: 20040704
  4. CLOZAPINE [Concomitant]
  5. FLUVOXAMIN [Concomitant]
  6. DEPAKENE [Concomitant]

REACTIONS (3)
  - GRAND MAL CONVULSION [None]
  - LEUKOPENIA [None]
  - NEUTROPENIA [None]
